FAERS Safety Report 4988919-4 (Version None)
Quarter: 2006Q2

REPORT INFORMATION
  Report Type: 
  Country: None (occurrence: None)
  Receive Date: 20060426
  Receipt Date: 20060413
  Transmission Date: 20061013
  Serious: Yes (Hospitalization)
  Sender: FDA-Public Use
  Company Number: 224173

PATIENT
  Sex: Female

DRUGS (4)
  1. XOLAIR [Suspect]
     Indication: ASTHMA
     Dosage: Q2W
  2. CIPROFLOXACIN [Suspect]
  3. VENALAFAXINE (VENLAFAXINE HYDROCHLORIDE) [Suspect]
  4. ANTIBIOTIC (ANTIBIOTICS NOS) [Concomitant]

REACTIONS (1)
  - EPILEPSY [None]
